FAERS Safety Report 4578423-X (Version None)
Quarter: 2005Q1

REPORT INFORMATION
  Report Type: 
  Country: None (occurrence: None)
  Receive Date: 20050209
  Receipt Date: 20050121
  Transmission Date: 20050727
  Serious: Yes (Hospitalization)
  Sender: FDA-Public Use
  Company Number: 2004241178US

PATIENT
  Age: 75 Year
  Sex: Male
  Weight: 71.6683 kg

DRUGS (6)
  1. DETROL LA [Suspect]
     Indication: HYPERTONIC BLADDER
     Dosage: 2 MG (2 MG, 1 IN 1 D), ORAL
     Route: 048
     Dates: start: 20040824, end: 20041215
  2. GLIPIZIDE (GLIPIIZIDE) [Concomitant]
  3. METFORMIN HYDROCHLORIDE (METFORMIN H HYDROCHLORIDE) [Concomitant]
  4. ATORVASTATIN (ATORVASTATIN) [Concomitant]
  5. ACETAMINOPHEN [Concomitant]
  6. CELECOXIB (CELECOXIB) [Concomitant]

REACTIONS (6)
  - ASTHENIA [None]
  - DRUG EFFECT DECREASED [None]
  - DRY EYE [None]
  - PROSTATITIS [None]
  - SOMNOLENCE [None]
  - URINARY INCONTINENCE [None]
